FAERS Safety Report 21567710 (Version 1)
Quarter: 2022Q4

REPORT INFORMATION
  Report Type: Report from Study
  Country: RU (occurrence: None)
  Receive Date: 20221108
  Receipt Date: 20221108
  Transmission Date: 20230113
  Serious: Yes (Other)
  Sender: FDA-Public Use
  Company Number: 2022A360208

PATIENT
  Age: 169 Month
  Sex: Female
  Weight: 169 kg

DRUGS (4)
  1. SELUMETINIB [Suspect]
     Active Substance: SELUMETINIB
     Indication: Neurofibromatosis
     Route: 048
     Dates: start: 20210416
  2. SELUMETINIB [Suspect]
     Active Substance: SELUMETINIB
     Indication: Neurofibromatosis
     Route: 048
     Dates: start: 20210416
  3. PICAMILON [Concomitant]
  4. COENZYME Q10 [Concomitant]
     Active Substance: DIETARY SUPPLEMENT\UBIDECARENONE

REACTIONS (14)
  - Blood creatine phosphokinase MB increased [Unknown]
  - Blood creatine phosphokinase increased [Unknown]
  - Pericardial effusion [Not Recovered/Not Resolved]
  - Affect lability [Recovered/Resolved]
  - Irritability [Recovered/Resolved]
  - Tearfulness [Recovered/Resolved]
  - Onychophagia [Recovered/Resolved]
  - Scratch [Recovered/Resolved]
  - COVID-19 [Unknown]
  - Rash [Recovered/Resolved]
  - Fatigue [Unknown]
  - Hair colour changes [Recovered/Resolved]
  - Nausea [Unknown]
  - Dyspnoea [Unknown]

NARRATIVE: CASE EVENT DATE: 20210401
